FAERS Safety Report 19611120 (Version 2)
Quarter: 2021Q4

REPORT INFORMATION
  Report Type: Spontaneous
  Country: FR (occurrence: FR)
  Receive Date: 20210726
  Receipt Date: 20211005
  Transmission Date: 20220304
  Serious: Yes (Hospitalization, Other)
  Sender: FDA-Public Use
  Company Number: None

PATIENT
  Age: 68 Year
  Sex: Male
  Weight: 82 kg

DRUGS (5)
  1. MEKTOVI [Suspect]
     Active Substance: BINIMETINIB
     Indication: Nodular melanoma
     Dosage: 45 MG, BID (2/DAY) (MORNING AND EVENING)
     Route: 048
     Dates: start: 20210304, end: 20210616
  2. MEKTOVI [Suspect]
     Active Substance: BINIMETINIB
     Indication: Nodular melanoma
  3. BRAFTOVI [Suspect]
     Active Substance: ENCORAFENIB
     Indication: Nodular melanoma
     Dosage: 450 MG, QD (1/DAY) (IN THE MORNING)
     Route: 048
     Dates: start: 20210304, end: 20210616
  4. BRAFTOVI [Suspect]
     Active Substance: ENCORAFENIB
     Indication: Nodular melanoma
  5. OPDIVO [Suspect]
     Active Substance: NIVOLUMAB
     Indication: Malignant melanoma
     Dosage: 480 MG, UNK
     Route: 042
     Dates: start: 20200911, end: 20210201

REACTIONS (3)
  - Blood creatine phosphokinase increased [Recovered/Resolved]
  - Myositis [Recovered/Resolved]
  - Muscular weakness [Recovered/Resolved]

NARRATIVE: CASE EVENT DATE: 20210403
